FAERS Safety Report 14188538 (Version 1)
Quarter: 2017Q4

REPORT INFORMATION
  Report Type: Spontaneous
  Country: US (occurrence: US)
  Receive Date: 20171114
  Receipt Date: 20171114
  Transmission Date: 20180321
  Serious: No
  Sender: FDA-Public Use
  Company Number: US-BAUSCH-BL-2017-027150

PATIENT
  Age: 75 Year
  Sex: Female
  Weight: 59.47 kg

DRUGS (1)
  1. APRISO [Suspect]
     Active Substance: MESALAMINE
     Indication: COLITIS
     Route: 048
     Dates: start: 20170828, end: 20170831

REACTIONS (4)
  - Chills [Recovering/Resolving]
  - Fatigue [Recovering/Resolving]
  - Dehydration [Recovering/Resolving]
  - Headache [Recovering/Resolving]

NARRATIVE: CASE EVENT DATE: 20170830
